FAERS Safety Report 10189474 (Version 1)
Quarter: 2014Q2

REPORT INFORMATION
  Report Type: Spontaneous
  Country: CA (occurrence: CA)
  Receive Date: 20140522
  Receipt Date: 20140522
  Transmission Date: 20141212
  Serious: Yes (Hospitalization, Other)
  Sender: FDA-Public Use
  Company Number: CA-CELGENEUS-028-21880-14052884

PATIENT
  Age: 77 Year
  Sex: Female
  Weight: 55 kg

DRUGS (19)
  1. REVLIMID [Suspect]
     Indication: PLASMA CELL MYELOMA
     Dosage: 25 MILLIGRAM
     Route: 048
     Dates: start: 20121212
  2. REVLIMID [Suspect]
     Dosage: 15 MILLIGRAM
     Route: 048
  3. REVLIMID [Suspect]
     Dosage: 25 MILLIGRAM
     Route: 048
     Dates: start: 201312, end: 20140506
  4. DEXAMETHASONE [Suspect]
     Indication: PLASMA CELL MYELOMA
     Route: 065
     Dates: start: 20121212
  5. DEXAMETHASONE [Suspect]
     Route: 048
     Dates: end: 20140514
  6. DEXAMETHASONE [Suspect]
     Route: 065
  7. ATENOLOL [Suspect]
     Indication: ARRHYTHMIA
     Dosage: 100 MILLIGRAM
     Route: 048
  8. DILTIAZEM [Suspect]
     Indication: ARRHYTHMIA
     Dosage: 120 MILLIGRAM
     Route: 048
  9. BISOPROLOL [Concomitant]
     Indication: PRODUCT USED FOR UNKNOWN INDICATION
     Dosage: 5 MILLIGRAM
     Route: 048
     Dates: end: 20140512
  10. FUROSEMIDE [Concomitant]
     Indication: PRODUCT USED FOR UNKNOWN INDICATION
     Dosage: 20 MILLIGRAM
     Route: 048
     Dates: start: 20140512
  11. RIVAROXABAN [Concomitant]
     Indication: PRODUCT USED FOR UNKNOWN INDICATION
     Dosage: 15 MILLIGRAM
     Route: 048
     Dates: start: 20140428
  12. ASA [Concomitant]
     Indication: PRODUCT USED FOR UNKNOWN INDICATION
     Dosage: 81 MILLIGRAM
     Route: 048
  13. VALACYCLOVIR [Concomitant]
     Indication: PROPHYLAXIS
     Dosage: 500 MILLIGRAM
     Route: 048
  14. OMEPRAZOLE [Concomitant]
     Indication: GASTROOESOPHAGEAL REFLUX DISEASE
     Dosage: 20 MILLIGRAM
     Route: 048
  15. CODEINE CONTIN [Concomitant]
     Indication: PAIN
     Dosage: 100 MILLIGRAM
     Route: 048
  16. ACETAMINOPHEN [Concomitant]
     Indication: PAIN
     Dosage: 1000 MILLIGRAM
     Route: 048
  17. CITALOPRAM [Concomitant]
     Indication: DEPRESSION
     Dosage: 10 MILLIGRAM
     Route: 048
  18. VITALUX [Concomitant]
     Indication: MACULAR DEGENERATION
     Route: 065
  19. SENOKOT-S [Concomitant]
     Indication: CONSTIPATION
     Route: 065

REACTIONS (3)
  - Arrhythmia [Recovered/Resolved]
  - Fall [Recovered/Resolved]
  - Pancytopenia [Recovered/Resolved]
